FAERS Safety Report 9973205 (Version 1)
Quarter: 2014Q1

REPORT INFORMATION
  Report Type: Spontaneous
  Country: US (occurrence: None)
  Receive Date: 20140214
  Receipt Date: 20140214
  Transmission Date: 20141002
  Serious: Yes (Life-Threatening)
  Sender: FDA-Public Use
  Company Number: FK201302307

PATIENT
  Sex: Female

DRUGS (1)
  1. ROCURONIUM BROMIDE INJECTION (ROCURONIUM BROMIDE) (ROCURONIUM BROMIDE) [Suspect]
     Indication: INDUCTION OF ANAESTHESIA
     Dosage: 10 MG/ML, 1 IN 1 TOTAL, INTRAVENOUS (NOT OTHERWISE SPECIFIED)
     Dates: start: 20130619, end: 20130619

REACTIONS (1)
  - Anaphylactic reaction [None]
